FAERS Safety Report 12400204 (Version 1)
Quarter: 2016Q2

REPORT INFORMATION
  Report Type: Spontaneous
  Country: US (occurrence: None)
  Receive Date: 20160524
  Receipt Date: 20160524
  Transmission Date: 20160815
  Serious: Yes (Disabling)
  Sender: FDA-Public Use
  Company Number: None

PATIENT
  Age: 47 Year
  Sex: Female

DRUGS (1)
  1. TOBRAMYCIN. [Suspect]
     Active Substance: TOBRAMYCIN
     Indication: CONJUNCTIVITIS
     Dosage: EVERY 4 HOURS INTO THE EYE
     Route: 031
     Dates: start: 20160516, end: 20160519

REACTIONS (9)
  - Vision blurred [None]
  - Eyelid exfoliation [None]
  - Conjunctivitis [None]
  - Feeling abnormal [None]
  - Lacrimation increased [None]
  - Eyelid oedema [None]
  - Eye pruritus [None]
  - Eye swelling [None]
  - Multiple allergies [None]

NARRATIVE: CASE EVENT DATE: 20160516
